FAERS Safety Report 7789511-9 (Version None)
Quarter: 2011Q3

REPORT INFORMATION
  Report Type: 
  Country: None (occurrence: None)
  Receive Date: 20110930
  Receipt Date: 20110920
  Transmission Date: 20111222
  Serious: Yes (Life-Threatening, Disabling)
  Sender: FDA-Public Use
  Company Number: DE-ELI_LILLY_AND_COMPANY-DE201109005712

PATIENT
  Sex: Male
  Weight: 93 kg

DRUGS (2)
  1. ZYPREXA [Suspect]
     Dosage: 10 UG, QD
     Route: 048
     Dates: end: 20110302
  2. ZYPREXA [Suspect]
     Indication: SCHIZOPHRENIA
     Dosage: 20 MG, QD
     Route: 048
     Dates: start: 20091201

REACTIONS (3)
  - RHABDOMYOLYSIS [None]
  - BLOOD COPPER INCREASED [None]
  - RENAL FAILURE [None]
